FAERS Safety Report 6270053-7 (Version None)
Quarter: 2009Q3

REPORT INFORMATION
  Report Type: 
  Country: None (occurrence: None)
  Receive Date: 20090716
  Receipt Date: 20090708
  Transmission Date: 20100115
  Serious: Yes (Death)
  Sender: FDA-Public Use
  Company Number: US-CELGENEUS-163-21880-09042143

PATIENT
  Sex: Male

DRUGS (6)
  1. REVLIMID [Suspect]
     Indication: MULTIPLE MYELOMA
     Route: 048
     Dates: start: 20090424, end: 20090518
  2. REVLIMID [Suspect]
     Route: 048
     Dates: start: 20080601, end: 20081001
  3. DECADRON [Suspect]
     Indication: MULTIPLE MYELOMA
     Route: 065
     Dates: start: 20090424, end: 20090518
  4. DECADRON [Suspect]
     Route: 065
     Dates: start: 20080601, end: 20081229
  5. VELCADE [Suspect]
     Indication: MULTIPLE MYELOMA
     Route: 065
     Dates: start: 20090424, end: 20090518
  6. VELCADE [Suspect]
     Route: 065
     Dates: start: 20081001, end: 20081229

REACTIONS (1)
  - MULTIPLE MYELOMA [None]
